FAERS Safety Report 16623052 (Version 3)
Quarter: 2019Q3

REPORT INFORMATION
  Report Type: Report from Study
  Country: CA (occurrence: CA)
  Receive Date: 20190723
  Receipt Date: 20190821
  Transmission Date: 20191004
  Serious: Yes (Hospitalization)
  Sender: FDA-Public Use
  Company Number: CA-GLAXOSMITHKLINE-CA2019AMR129668

PATIENT
  Age: 54 Year
  Sex: Female

DRUGS (2)
  1. MEPOLIZUMAB [Suspect]
     Active Substance: MEPOLIZUMAB
     Indication: ASTHMA
     Dosage: 100 MG, (MONTHLY)
     Route: 042
     Dates: start: 20160825
  2. MEPOLIZUMAB [Suspect]
     Active Substance: MEPOLIZUMAB
     Dosage: 100 MG, (MONTHLY)
     Route: 042

REACTIONS (5)
  - Nausea [Unknown]
  - Accident [Unknown]
  - Malaise [Unknown]
  - Feeling abnormal [Unknown]
  - Limb injury [Unknown]

NARRATIVE: CASE EVENT DATE: 20190702
